FAERS Safety Report 8574904-2 (Version None)
Quarter: 2012Q3

REPORT INFORMATION
  Report Type: 
  Country: None (occurrence: None)
  Receive Date: 20120807
  Receipt Date: 20111007
  Transmission Date: 20120928
  Serious: Yes (Other)
  Sender: FDA-Public Use
  Company Number: DE-CELGENEUS-062-50794-12061607

PATIENT
  Age: 66 Year
  Sex: Female
  Weight: 86 kg

DRUGS (15)
  1. VIDAZA [Suspect]
     Route: 065
     Dates: start: 20101129, end: 20110711
  2. RED BLOOD CELLS [Concomitant]
     Route: 065
     Dates: start: 20110113
  3. PLATELETS [Concomitant]
     Route: 065
     Dates: start: 20110113
  4. RED BLOOD CELLS [Concomitant]
     Route: 065
     Dates: start: 20110323
  5. PLATELETS [Concomitant]
     Route: 065
     Dates: start: 20110218
  6. PLATELETS [Concomitant]
     Route: 065
     Dates: start: 20110715
  7. PLATELETS [Concomitant]
     Route: 065
     Dates: start: 20101203
  8. PLATELETS [Concomitant]
     Route: 065
  9. RED BLOOD CELLS [Concomitant]
     Route: 065
     Dates: start: 20101209
  10. RED BLOOD CELLS [Concomitant]
     Route: 065
     Dates: start: 20110218
  11. RED BLOOD CELLS [Concomitant]
     Route: 065
     Dates: start: 20110715
  12. PLATELETS [Concomitant]
     Route: 065
     Dates: start: 20110318
  13. PLATELETS [Concomitant]
     Route: 065
     Dates: start: 20110506
  14. RED BLOOD CELLS [Concomitant]
     Route: 065
     Dates: start: 20110506
  15. RED BLOOD CELLS [Concomitant]
     Route: 065
     Dates: start: 20110601

REACTIONS (5)
  - VAGINAL HAEMORRHAGE [None]
  - THROMBOCYTOPENIA [None]
  - LEUKOPENIA [None]
  - SKIN DISORDER [None]
  - ANAEMIA [None]
